FAERS Safety Report 10979078 (Version 1)
Quarter: 2015Q2

REPORT INFORMATION
  Report Type: Spontaneous
  Country: PL (occurrence: PL)
  Receive Date: 20150402
  Receipt Date: 20150402
  Transmission Date: 20150821
  Serious: Yes (Life-Threatening, Hospitalization)
  Sender: FDA-Public Use
  Company Number: PL-JNJFOC-20150400376

PATIENT
  Age: 13 Year
  Sex: Female
  Weight: 52 kg

DRUGS (5)
  1. FLONIDAN [Suspect]
     Active Substance: LORATADINE
     Indication: ABNORMAL BEHAVIOUR
     Route: 048
     Dates: start: 20150116
  2. DIAPREL [Suspect]
     Active Substance: GLICLAZIDE
     Indication: ABNORMAL BEHAVIOUR
     Route: 048
     Dates: start: 20150116
  3. ZINNAT [Suspect]
     Active Substance: CEFUROXIME AXETIL
     Indication: ABNORMAL BEHAVIOUR
     Route: 048
     Dates: start: 20150116
  4. AMOXICILLIN TRIHYDRATE [Suspect]
     Active Substance: AMOXICILLIN
     Indication: ABNORMAL BEHAVIOUR
     Route: 048
     Dates: start: 20150116
  5. TRAMADOL HYDROCHLORIDE. [Suspect]
     Active Substance: TRAMADOL HYDROCHLORIDE
     Indication: ABNORMAL BEHAVIOUR
     Route: 048
     Dates: start: 20150116

REACTIONS (7)
  - Hypoglycaemia [Recovered/Resolved]
  - Dizziness [Recovered/Resolved]
  - Balance disorder [Recovered/Resolved]
  - Abdominal pain [Recovered/Resolved]
  - Suicide attempt [Recovered/Resolved]
  - Depressed mood [Recovered/Resolved]
  - Headache [Recovered/Resolved]

NARRATIVE: CASE EVENT DATE: 20150116
